FAERS Safety Report 15584204 (Version 1)
Quarter: 2018Q4

REPORT INFORMATION
  Report Type: Spontaneous
  Country: FR (occurrence: FR)
  Receive Date: 20181105
  Receipt Date: 20181105
  Transmission Date: 20190205
  Serious: Yes (Hospitalization, Other)
  Sender: FDA-Public Use
  Company Number: FR-AUROBINDO-AUR-APL-2018-053580

PATIENT
  Age: 86 Year
  Sex: Male

DRUGS (5)
  1. PERINDOPRIL ARROW 2 MG TABLETS [Suspect]
     Active Substance: PERINDOPRIL
     Indication: HYPERTENSION
     Dosage: 2 MILLIGRAM, DAILY
     Route: 048
     Dates: start: 20180905, end: 20180912
  2. ESCITALOPRAM ARROW [Concomitant]
     Active Substance: ESCITALOPRAM OXALATE
     Indication: PRODUCT USED FOR UNKNOWN INDICATION
     Dosage: 10 MILLIGRAM, DAILY
     Route: 048
  3. PERINDOPRIL ARROW 4 MG,TABLET [Suspect]
     Active Substance: PERINDOPRIL
     Indication: HYPERTENSION
     Dosage: 4 MILLIGRAM, DAILY
     Route: 048
     Dates: start: 20180905, end: 20180908
  4. DIFFU K [Suspect]
     Active Substance: POTASSIUM CHLORIDE
     Indication: PRODUCT USED FOR UNKNOWN INDICATION
     Dosage: 6 DOSAGE FORM, DAILY
     Route: 048
  5. BACTRIM [Concomitant]
     Active Substance: SULFAMETHOXAZOLE\TRIMETHOPRIM
     Indication: PROSTATITIS
     Dosage: 2 DOSAGE FORM, DAILY
     Route: 048
     Dates: start: 20180831, end: 20180911

REACTIONS (4)
  - Atrioventricular block [Recovered/Resolved]
  - Chest pain [Recovered/Resolved]
  - Bradycardia [Recovered/Resolved]
  - Hyperkalaemia [Recovered/Resolved]

NARRATIVE: CASE EVENT DATE: 20180908
